FAERS Safety Report 10241928 (Version 1)
Quarter: 2014Q2

REPORT INFORMATION
  Report Type: Spontaneous
  Country: SG (occurrence: SG)
  Receive Date: 20140617
  Receipt Date: 20140617
  Transmission Date: 20141212
  Serious: Yes (Other)
  Sender: FDA-Public Use
  Company Number: SG-GLAXOSMITHKLINE-B1004462A

PATIENT
  Age: 27 Year
  Sex: Female

DRUGS (4)
  1. ACICLOVIR [Suspect]
     Indication: MOUTH ULCERATION
     Route: 065
     Dates: start: 20140402, end: 20140430
  2. VANCOMYCIN [Suspect]
     Indication: STAPHYLOCOCCAL SEPSIS
     Route: 065
     Dates: start: 20140421, end: 20140430
  3. NORETHISTERONE [Concomitant]
     Dates: start: 20140424, end: 20140430
  4. POSACONAZOLE [Concomitant]
     Dates: start: 20140318, end: 20140420

REACTIONS (1)
  - Red man syndrome [Recovered/Resolved]
